FAERS Safety Report 10157171 (Version 1)
Quarter: 2014Q2

REPORT INFORMATION
  Report Type: Spontaneous
  Country: CA (occurrence: CA)
  Receive Date: 20140507
  Receipt Date: 20140507
  Transmission Date: 20141212
  Serious: Yes (Hospitalization)
  Sender: FDA-Public Use
  Company Number: CA-B.I. PHARMACEUTICALS,INC./RIDGEFIELD-2014-BI-20142CN

PATIENT
  Age: 85 Year
  Sex: Female

DRUGS (3)
  1. SPIRIVA [Suspect]
     Indication: PRODUCT USED FOR UNKNOWN INDICATION
     Route: 065
  2. ADVAIR DISKUS [Suspect]
     Indication: PRODUCT USED FOR UNKNOWN INDICATION
     Dosage: DOSE PER APPLICATION: 2.0 DOSAGE FORMS
     Route: 055
  3. WARFARIN [Concomitant]
     Route: 065

REACTIONS (5)
  - Lung disorder [Unknown]
  - Lung infection [Unknown]
  - Dry mouth [Unknown]
  - Dysphagia [Unknown]
  - Oropharyngeal pain [Unknown]
